FAERS Safety Report 24286665 (Version 1)
Quarter: 2024Q3

REPORT INFORMATION
  Report Type: Report from Study
  Country: PH (occurrence: PH)
  Receive Date: 20240905
  Receipt Date: 20240905
  Transmission Date: 20241017
  Serious: Yes (Death)
  Sender: OTSUKA
  Company Number: PH-OTSUKA-2024_011053

PATIENT
  Age: 71 Year
  Sex: Female

DRUGS (2)
  1. TOLVAPTAN [Suspect]
     Active Substance: TOLVAPTAN
     Indication: Product used for unknown indication
     Dosage: 0.5 DF TIW (15MG 1/2 EVERY MONDAY, WEDNESDAY AND FRIDAY)
     Route: 048
  2. TOLVAPTAN [Suspect]
     Active Substance: TOLVAPTAN
     Dosage: 0.5 DF, QD (15 MG 1/2 TABLET A DAY)
     Route: 048

REACTIONS (4)
  - Death [Fatal]
  - Wrong technique in product usage process [Unknown]
  - Underdose [Unknown]
  - Inappropriate schedule of product administration [Unknown]

NARRATIVE: CASE EVENT DATE: 20240827
